FAERS Safety Report 17518050 (Version 4)
Quarter: 2020Q2

REPORT INFORMATION
  Report Type: Spontaneous
  Country: BR (occurrence: BR)
  Receive Date: 20200309
  Receipt Date: 20200417
  Transmission Date: 20200713
  Serious: Yes (Death, Hospitalization)
  Sender: FDA-Public Use
  Company Number: BR-BAYER-2020-024453

PATIENT
  Age: 46 Year
  Sex: Female

DRUGS (2)
  1. VITRAKVI [Suspect]
     Active Substance: LAROTRECTINIB
     Indication: UTERINE LEIOMYOSARCOMA
     Dosage: 100 UNK
     Route: 048
     Dates: start: 20200206, end: 20200305
  2. VITRAKVI [Suspect]
     Active Substance: LAROTRECTINIB
     Indication: UTERINE LEIOMYOSARCOMA
     Dosage: 100 MG, BID
     Dates: start: 20200308

REACTIONS (16)
  - Dyspnoea [Not Recovered/Not Resolved]
  - Oedema [None]
  - Uterine leiomyosarcoma [Fatal]
  - Constipation [Not Recovered/Not Resolved]
  - Pyrexia [None]
  - Pulmonary embolism [Fatal]
  - Cough [None]
  - Muscular weakness [None]
  - Abdominal pain upper [Not Recovered/Not Resolved]
  - Dyspepsia [Not Recovered/Not Resolved]
  - Fatigue [Not Recovered/Not Resolved]
  - Decreased appetite [Not Recovered/Not Resolved]
  - Diarrhoea [Not Recovered/Not Resolved]
  - Tachypnoea [Not Recovered/Not Resolved]
  - Tinnitus [Recovered/Resolved]
  - Nausea [Not Recovered/Not Resolved]

NARRATIVE: CASE EVENT DATE: 202002
